FAERS Safety Report 13251424 (Version 1)
Quarter: 2017Q1

REPORT INFORMATION
  Report Type: Spontaneous
  Country: NL (occurrence: NL)
  Receive Date: 20170220
  Receipt Date: 20170220
  Transmission Date: 20170428
  Serious: Yes (Death)
  Sender: FDA-Public Use
  Company Number: NL-ALVOGEN-2017-ALVOGEN-091580

PATIENT
  Age: 23 Year
  Sex: Female

DRUGS (2)
  1. LEVETIRACETAM. [Suspect]
     Active Substance: LEVETIRACETAM
     Indication: EPILEPSY
     Route: 048
     Dates: start: 20140101
  2. MICROGYNON [Interacting]
     Active Substance: ETHINYL ESTRADIOL\LEVONORGESTREL ACETATE
     Indication: CONTRACEPTION
     Route: 048
     Dates: start: 20161222

REACTIONS (3)
  - Drug interaction [Fatal]
  - Headache [Fatal]
  - Epilepsy [Fatal]

NARRATIVE: CASE EVENT DATE: 20161222
